FAERS Safety Report 23999154 (Version 1)
Quarter: 2024Q2

REPORT INFORMATION
  Report Type: Spontaneous
  Country: US (occurrence: US)
  Receive Date: 20240621
  Receipt Date: 20240621
  Transmission Date: 20240716
  Serious: Yes (Death, Life-Threatening, Hospitalization, Other)
  Sender: FDA-Public Use
  Company Number: US-MLMSERVICE-20240411-PI023631-00218-1

PATIENT
  Age: 51 Year
  Sex: Female

DRUGS (4)
  1. METHOTREXATE [Suspect]
     Active Substance: METHOTREXATE
     Indication: Rheumatoid arthritis
     Dosage: 15 MILLIGRAM, ONCE A DAY
     Route: 065
  2. METHOTREXATE [Suspect]
     Active Substance: METHOTREXATE
     Dosage: 15 MILLIGRAM, EVERY WEEK
     Route: 065
  3. PREDNISONE [Concomitant]
     Active Substance: PREDNISONE
     Indication: Rheumatoid arthritis
     Dosage: 5 MILLIGRAM, ONCE A DAY
     Route: 065
  4. APIXABAN [Concomitant]
     Active Substance: APIXABAN
     Indication: Pulmonary embolism
     Dosage: UNK
     Route: 065

REACTIONS (14)
  - Anticoagulation drug level above therapeutic [Fatal]
  - Acute hepatic failure [Fatal]
  - Lactic acidosis [Fatal]
  - Septic shock [Fatal]
  - Klebsiella infection [Fatal]
  - Cardiac arrest [Fatal]
  - Pancytopenia [Fatal]
  - Hypotension [Fatal]
  - Gastrointestinal haemorrhage [Fatal]
  - Inappropriate schedule of product administration [Fatal]
  - Escherichia infection [Unknown]
  - Acute kidney injury [Unknown]
  - Mouth ulceration [Unknown]
  - Mucosal ulceration [Unknown]
